FAERS Safety Report 19459440 (Version 2)
Quarter: 2021Q4

REPORT INFORMATION
  Report Type: Spontaneous
  Country: US (occurrence: US)
  Receive Date: 20210624
  Receipt Date: 20211109
  Transmission Date: 20220303
  Serious: No
  Sender: FDA-Public Use
  Company Number: US-ALXN-A202107180

PATIENT
  Sex: Female

DRUGS (1)
  1. STRENSIQ [Suspect]
     Active Substance: ASFOTASE ALFA
     Indication: Product used for unknown indication
     Dosage: UNK
     Route: 065

REACTIONS (10)
  - Abdominal pain lower [Unknown]
  - Body temperature abnormal [Unknown]
  - Sinusitis [Unknown]
  - Ear infection [Unknown]
  - Hypersensitivity [Unknown]
  - Injection site rash [Unknown]
  - Injection site bruising [Unknown]
  - Injection site reaction [Unknown]
  - Injection site mass [Unknown]
  - Drug hypersensitivity [Unknown]
